APPROVED DRUG PRODUCT: SEVELAMER CARBONATE
Active Ingredient: SEVELAMER CARBONATE
Strength: 800MG
Dosage Form/Route: TABLET;ORAL
Application: A206100 | Product #001 | TE Code: AB
Applicant: MACLEODS PHARMACEUTICALS LTD
Approved: Apr 19, 2023 | RLD: No | RS: No | Type: RX